FAERS Safety Report 6634710-2 (Version None)
Quarter: 2010Q1

REPORT INFORMATION
  Report Type: 
  Country: None (occurrence: None)
  Receive Date: 20100311
  Receipt Date: 20100311
  Transmission Date: 20100710
  Serious: Yes (Other)
  Sender: FDA-Public Use
  Company Number: None

PATIENT
  Sex: Male
  Weight: 73.4827 kg

DRUGS (2)
  1. ADDERALL 20 [Suspect]
     Indication: ATTENTION DEFICIT/HYPERACTIVITY DISORDER
     Dosage: 20 MG. 1 X DAY ORAL 2007 OR 8 UNTIL 2010 NOW
     Route: 048
  2. ADDERALL 20 [Suspect]
     Indication: DEPRESSION
     Dosage: 20 MG. 1 X DAY ORAL 2007 OR 8 UNTIL 2010 NOW
     Route: 048

REACTIONS (6)
  - AGITATION [None]
  - DEPRESSION [None]
  - DRUG INEFFECTIVE [None]
  - PRODUCT FORMULATION ISSUE [None]
  - PRODUCT PACKAGING ISSUE [None]
  - PRODUCT SUBSTITUTION ISSUE [None]
